FAERS Safety Report 24779229 (Version 5)
Quarter: 2025Q3

REPORT INFORMATION
  Report Type: Report from Study
  Country: EU (occurrence: EU)
  Receive Date: 20241226
  Receipt Date: 20250724
  Transmission Date: 20251021
  Serious: Yes (Hospitalization, Disabling, Other)
  Sender: ALNYLAM PHARMACEUTICALS
  Company Number: EU-ALNYLAM PHARMACEUTICALS, INC.-ALN-2024-007232

PATIENT

DRUGS (1)
  1. OXLUMO [Suspect]
     Active Substance: LUMASIRAN
     Indication: Product used for unknown indication
     Dosage: 189 MILLIGRAM, Q3M (94.5 MILLIGRAM/0.5 MILLILITER)
     Route: 065

REACTIONS (32)
  - Suicidal ideation [Unknown]
  - Syncope [Unknown]
  - Accident at home [Unknown]
  - Limb traumatic amputation [Unknown]
  - Multiple sclerosis relapse [Unknown]
  - Back pain [Recovered/Resolved]
  - Myalgia [Not Recovered/Not Resolved]
  - Stress [Unknown]
  - Uterine mass [Unknown]
  - Dizziness [Unknown]
  - Lymphatic disorder [Unknown]
  - Tongue discolouration [Recovered/Resolved]
  - Mucosal disorder [Unknown]
  - Hypervolaemia [Unknown]
  - Decreased appetite [Unknown]
  - Weight decreased [Unknown]
  - Hypoglycaemia [Unknown]
  - Polyuria [Unknown]
  - Sleep disorder [Unknown]
  - Fatigue [Unknown]
  - Mobility decreased [Unknown]
  - Vision blurred [Unknown]
  - Strabismus [Unknown]
  - Emotional distress [Unknown]
  - Condition aggravated [Unknown]
  - Initial insomnia [Unknown]
  - Weight fluctuation [Unknown]
  - Fine motor skill dysfunction [Unknown]
  - Hidradenitis [Unknown]
  - Gait disturbance [Unknown]
  - Nutritional condition abnormal [Unknown]
  - Injury [Unknown]

NARRATIVE: CASE EVENT DATE: 20250501
